FAERS Safety Report 8235942-2 (Version None)
Quarter: 2012Q1

REPORT INFORMATION
  Report Type: 
  Country: None (occurrence: None)
  Receive Date: 20120326
  Receipt Date: 20120321
  Transmission Date: 20120608
  Serious: Yes (Hospitalization)
  Sender: FDA-Public Use
  Company Number: US-MERCK-1202USA04289

PATIENT
  Age: 20 Year
  Sex: Female

DRUGS (4)
  1. KLONOPIN [Concomitant]
     Route: 065
  2. SAPHRIS [Suspect]
     Indication: BIPOLAR DISORDER
     Route: 048
     Dates: start: 20110101
  3. PRINIVIL [Suspect]
     Route: 048
  4. DEPAKOTE [Concomitant]
     Route: 065

REACTIONS (2)
  - HYPOTENSION [None]
  - DIZZINESS [None]
